FAERS Safety Report 7740189-X (Version None)
Quarter: 2011Q3

REPORT INFORMATION
  Report Type: 
  Country: None (occurrence: None)
  Receive Date: 20110909
  Receipt Date: 20110908
  Transmission Date: 20111222
  Serious: Yes (Death, Other)
  Sender: FDA-Public Use
  Company Number: ZA-PFIZER INC-2011191577

PATIENT
  Age: 23 Year
  Sex: Female

DRUGS (4)
  1. VENLAFAXINE [Suspect]
     Dosage: UNK
  2. LAMOTRIGINE [Suspect]
     Dosage: UNK
  3. GEODON [Suspect]
     Indication: BIPOLAR DISORDER
     Dosage: 120 MG, 1X/DAY (NOCTE)
     Route: 048
  4. AMITRIPTYLINE HCL [Suspect]
     Dosage: UNK

REACTIONS (3)
  - CARDIAC ARREST [None]
  - COMPLETED SUICIDE [None]
  - MULTIPLE DRUG OVERDOSE INTENTIONAL [None]
